FAERS Safety Report 12181303 (Version 1)
Quarter: 2016Q1

REPORT INFORMATION
  Report Type: Spontaneous
  Country: None (occurrence: US)
  Receive Date: 20160315
  Receipt Date: 20160315
  Transmission Date: 20160526
  Serious: Yes (Hospitalization)
  Sender: FDA-Public Use
  Company Number: US-FRESENIUS MEDICAL CARE NORTH AMERICA-1049114

PATIENT
  Age: 70 Year
  Sex: Male
  Weight: 110 kg

DRUGS (1)
  1. DELFLEX [Suspect]
     Active Substance: CALCIUM CHLORIDE\DEXTROSE\MAGNESIUM CHLORIDE\SODIUM CHLORIDE\SODIUM LACTATE
     Indication: END STAGE RENAL DISEASE
     Route: 033

REACTIONS (4)
  - Cardiac failure congestive [Recovering/Resolving]
  - Pulmonary oedema [Recovering/Resolving]
  - Hyponatraemia [Recovering/Resolving]
  - Hypervolaemia [Recovering/Resolving]

NARRATIVE: CASE EVENT DATE: 20160229
